FAERS Safety Report 8059144-8 (Version None)
Quarter: 2012Q1

REPORT INFORMATION
  Report Type: 
  Country: None (occurrence: None)
  Receive Date: 20120113
  Receipt Date: 20120105
  Transmission Date: 20120608
  Serious: Yes (Hospitalization, Other)
  Sender: FDA-Public Use
  Company Number: 2010MA002413

PATIENT
  Sex: Female
  Weight: 63.9572 kg

DRUGS (41)
  1. ACTOS [Concomitant]
  2. NITROGLYCERIN [Concomitant]
  3. NOVOLIN 70/30 [Concomitant]
  4. PLAVIX [Concomitant]
  5. ARICEPT [Concomitant]
  6. LOVASTATIN [Concomitant]
  7. NORVASC [Concomitant]
  8. PREDNISOLONE [Concomitant]
  9. FELODIPINE [Concomitant]
  10. ALLOPURINOL [Concomitant]
  11. AMOXICILLIN [Concomitant]
  12. COZAAR [Concomitant]
  13. FAMOTIDINE [Concomitant]
  14. RAMIPRIL [Concomitant]
  15. VOLTAREN [Concomitant]
  16. ATENOLOL [Concomitant]
  17. HYDROCHLOROTHIAZIDE [Concomitant]
  18. METFORMIN HCL [Concomitant]
  19. METROGEL [Concomitant]
  20. OFLOXACIN [Concomitant]
  21. PRILOSEC [Concomitant]
  22. VITAMIN D [Concomitant]
  23. CHOLINE MAGNESIUM TRISALICYLATE [Concomitant]
  24. COENZYME Q10 [Concomitant]
  25. EXELON [Concomitant]
  26. METOPROLOL TARTRATE [Concomitant]
  27. ZOCOR [Concomitant]
  28. ASPIRIN [Concomitant]
  29. CITRACAL [Concomitant]
  30. FLUTICASONE PROPIONATE [Concomitant]
  31. FUROSEMIDE [Concomitant]
  32. KLOR-CON [Concomitant]
  33. LANTUS [Concomitant]
  34. NIFEDIPINE [Concomitant]
  35. NORTRIPTYLINE HCL [Concomitant]
  36. METOCLOPRAMIDE [Suspect]
     Indication: GASTROOESOPHAGEAL REFLUX DISEASE
     Dosage: 10 MG;QID HS;PO
     Route: 048
     Dates: start: 20000619, end: 20080902
  37. METOCLOPRAMIDE [Suspect]
     Indication: DIABETIC GASTROPARESIS
     Dosage: 10 MG;QID HS;PO
     Route: 048
     Dates: start: 20000619, end: 20080902
  38. CITALOPRAM HYDROBROMIDE [Concomitant]
  39. GLYBURIDE [Concomitant]
  40. LISINOPRIL [Concomitant]
  41. MINOCYCLINE HCL [Concomitant]

REACTIONS (19)
  - TRANSIENT ISCHAEMIC ATTACK [None]
  - CONFUSIONAL STATE [None]
  - CEREBROVASCULAR ACCIDENT [None]
  - ECONOMIC PROBLEM [None]
  - MEMORY IMPAIRMENT [None]
  - DEMENTIA [None]
  - CEREBRAL ATROPHY [None]
  - LUMBAR SPINAL STENOSIS [None]
  - FEELING JITTERY [None]
  - APHASIA [None]
  - BACK PAIN [None]
  - CORONARY ARTERY DISEASE [None]
  - DYSARTHRIA [None]
  - TARDIVE DYSKINESIA [None]
  - DYSTONIA [None]
  - PAIN [None]
  - EXTRAPYRAMIDAL DISORDER [None]
  - EMOTIONAL DISTRESS [None]
  - HYPOAESTHESIA [None]
